FAERS Safety Report 7090146-4 (Version None)
Quarter: 2010Q4

REPORT INFORMATION
  Report Type: 
  Country: None (occurrence: None)
  Receive Date: 20101105
  Receipt Date: 20101105
  Transmission Date: 20110411
  Serious: Yes (Other)
  Sender: FDA-Public Use
  Company Number: None

PATIENT
  Age: 90 Year
  Sex: Male
  Weight: 82.5547 kg

DRUGS (1)
  1. PROCRIT [Suspect]
     Indication: MULTIPLE MYELOMA
     Dosage: 40,000 UNITS WEEKLY IM
     Route: 030
     Dates: start: 20100527, end: 20100929

REACTIONS (4)
  - MUSCLE DISORDER [None]
  - MUSCULOSKELETAL PAIN [None]
  - PAIN IN EXTREMITY [None]
  - SKIN DISCOLOURATION [None]
